FAERS Safety Report 7581735-9 (Version None)
Quarter: 2011Q2

REPORT INFORMATION
  Report Type: 
  Country: None (occurrence: None)
  Receive Date: 20110629
  Receipt Date: 20110620
  Transmission Date: 20111010
  Serious: Yes (Disabling)
  Sender: FDA-Public Use
  Company Number: BG-ASTRAZENECA-2011SE37526

PATIENT
  Age: 70 Year
  Sex: Female

DRUGS (3)
  1. CRESTOR [Suspect]
     Indication: HYPERCHOLESTEROLAEMIA
     Route: 048
  2. SERMION [Concomitant]
     Route: 048
  3. PHYSIOTENS [Concomitant]
     Route: 048

REACTIONS (2)
  - GAIT DISTURBANCE [None]
  - MYALGIA [None]
